FAERS Safety Report 11537718 (Version 4)
Quarter: 2016Q1

REPORT INFORMATION
  Report Type: Spontaneous
  Country: US (occurrence: US)
  Receive Date: 20150922
  Receipt Date: 20160219
  Transmission Date: 20160525
  Serious: No
  Sender: FDA-Public Use
  Company Number: US-PFIZER INC-2015306742

PATIENT
  Age: 46 Year
  Sex: Female
  Weight: 137 kg

DRUGS (2)
  1. LYRICA [Suspect]
     Active Substance: PREGABALIN
     Indication: NEUROPATHY PERIPHERAL
     Dosage: 1 DF, 1X/DAY (QHS)
     Route: 048
  2. LYRICA [Suspect]
     Active Substance: PREGABALIN
     Indication: PAIN IN EXTREMITY
     Dosage: 100 MG, 2X/DAY
     Dates: start: 201412

REACTIONS (5)
  - Pain [Unknown]
  - Drug dispensing error [Unknown]
  - Pain in extremity [Unknown]
  - Insomnia [Unknown]
  - Gait disturbance [Unknown]
